FAERS Safety Report 8819385 (Version 1)
Quarter: 2012Q4

REPORT INFORMATION
  Report Type: Spontaneous
  Country: US (occurrence: None)
  Receive Date: 20121004
  Receipt Date: 20121004
  Transmission Date: 20130627
  Serious: No
  Sender: FDA-Public Use
  Company Number: None

PATIENT
  Age: 52 Year
  Sex: Female
  Weight: 47.63 kg

DRUGS (1)
  1. OMEPRAZOLE [Suspect]
     Indication: GASTRIC DISORDER
     Dosage: 40MG ONE DAILY po
     Route: 048
     Dates: start: 20120921, end: 20120923

REACTIONS (4)
  - Nausea [None]
  - Skin swelling [None]
  - Decreased appetite [None]
  - Weight decreased [None]
